FAERS Safety Report 18255018 (Version 2)
Quarter: 2020Q3

REPORT INFORMATION
  Report Type: Spontaneous
  Country: FR (occurrence: FR)
  Receive Date: 20200911
  Receipt Date: 20200929
  Transmission Date: 20201103
  Serious: Yes (Other)
  Sender: FDA-Public Use
  Company Number: FR-AUROBINDO-AUR-APL-2020-047078

PATIENT
  Age: 25 Year
  Sex: Male

DRUGS (1)
  1. CINACALCET. [Suspect]
     Active Substance: CINACALCET
     Indication: HYPERPARATHYROIDISM SECONDARY
     Dosage: 1.9 MG/KG DAILY
     Route: 065

REACTIONS (3)
  - Hypocalcaemia [Unknown]
  - Off label use [Unknown]
  - Product use in unapproved indication [Unknown]
